FAERS Safety Report 25347762 (Version 1)
Quarter: 2025Q2

REPORT INFORMATION
  Report Type: Spontaneous
  Country: FR (occurrence: FR)
  Receive Date: 20250522
  Receipt Date: 20250522
  Transmission Date: 20250716
  Serious: Yes (Death, Life-Threatening, Hospitalization)
  Sender: MERCK SHARP & DOHME LLC
  Company Number: None

PATIENT
  Age: 83 Year
  Sex: Male
  Weight: 87 kg

DRUGS (9)
  1. TEMOZOLOMIDE [Suspect]
     Active Substance: TEMOZOLOMIDE
     Indication: Glioblastoma
     Route: 048
     Dates: start: 20250324, end: 20250328
  2. TEMOZOLOMIDE [Suspect]
     Active Substance: TEMOZOLOMIDE
     Indication: Glioblastoma
     Route: 048
     Dates: start: 20250407, end: 20250410
  3. TAZOBACTAM [Suspect]
     Active Substance: TAZOBACTAM
     Indication: Pseudomonas infection
     Route: 042
     Dates: start: 20250409, end: 20250409
  4. TAZOBACTAM [Suspect]
     Active Substance: TAZOBACTAM
     Indication: Pseudomonas infection
     Route: 042
     Dates: start: 20250414, end: 20250418
  5. TAZOBACTAM [Suspect]
     Active Substance: TAZOBACTAM
     Indication: Pseudomonas infection
     Route: 042
     Dates: start: 20250426
  6. MEROPENEM ANHYDROUS [Suspect]
     Active Substance: MEROPENEM ANHYDROUS
     Indication: Pseudomonas infection
     Route: 042
     Dates: start: 20250410, end: 20250414
  7. PIPERACILLIN [Suspect]
     Active Substance: PIPERACILLIN
     Indication: Pseudomonas infection
     Route: 042
     Dates: start: 20250409, end: 20250409
  8. PIPERACILLIN [Suspect]
     Active Substance: PIPERACILLIN
     Indication: Pseudomonas infection
     Route: 042
     Dates: start: 20250414, end: 20250418
  9. PIPERACILLIN [Suspect]
     Active Substance: PIPERACILLIN
     Indication: Pseudomonas infection
     Route: 042
     Dates: start: 20250426

REACTIONS (1)
  - Pancytopenia [Fatal]

NARRATIVE: CASE EVENT DATE: 20250412
